FAERS Safety Report 12119889 (Version 2)
Quarter: 2016Q2

REPORT INFORMATION
  Report Type: Spontaneous
  Country: BR (occurrence: BR)
  Receive Date: 20160226
  Receipt Date: 20160405
  Transmission Date: 20160815
  Serious: Yes (Death, Hospitalization)
  Sender: FDA-Public Use
  Company Number: BR-PFIZER INC-2012066283

PATIENT
  Age: 47 Year
  Sex: Female

DRUGS (5)
  1. FRONTAL [Suspect]
     Active Substance: ALPRAZOLAM
     Indication: DEPRESSION
     Dosage: 1 MG, 2X/DAY
     Route: 048
     Dates: start: 1991, end: 2016
  2. FRONTAL XR [Suspect]
     Active Substance: ALPRAZOLAM
     Indication: ANXIETY
     Dosage: STRENGTH 1MG
     Route: 048
     Dates: start: 1991, end: 1991
  3. FLUXENE [Concomitant]
     Active Substance: FLUOXETINE HYDROCHLORIDE
     Indication: BLOOD PRESSURE ABNORMAL
     Dosage: 2 TABLETS, UNSPECIFIED FREQUENCY
  4. FRONTAL [Suspect]
     Active Substance: ALPRAZOLAM
     Indication: ANXIETY
  5. FRONTAL XR [Suspect]
     Active Substance: ALPRAZOLAM
     Dosage: 4 MG, DAILY  (2 TABLETS OF 2 MG PER DAY)
     Route: 048
     Dates: start: 1991

REACTIONS (7)
  - Dysgeusia [Recovered/Resolved]
  - Agitation [Unknown]
  - Fall [Unknown]
  - Death [Fatal]
  - Dysstasia [Unknown]
  - Thirst [Recovered/Resolved]
  - Irritability [Not Recovered/Not Resolved]

NARRATIVE: CASE EVENT DATE: 1991
